FAERS Safety Report 6695801-3 (Version None)
Quarter: 2010Q2

REPORT INFORMATION
  Report Type: 
  Country: None (occurrence: None)
  Receive Date: 20100423
  Receipt Date: 20100423
  Transmission Date: 20101027
  Serious: No
  Sender: FDA-Public Use
  Company Number: None

PATIENT
  Age: 51 Year
  Sex: Female
  Weight: 143.3367 kg

DRUGS (4)
  1. LEVAQUIN [Suspect]
     Indication: INFECTION PROPHYLAXIS
     Dosage: 500MG DAILY PO
     Route: 048
     Dates: start: 20060901, end: 20060904
  2. LEVAQUIN [Suspect]
     Indication: INFECTION PROPHYLAXIS
     Dosage: 500MG DAILY PO
     Route: 048
     Dates: start: 20070115, end: 20070316
  3. LEVAQUIN [Concomitant]
  4. LEVOFLOXACIN [Concomitant]

REACTIONS (9)
  - DISORIENTATION [None]
  - DIZZINESS [None]
  - DYSTONIA [None]
  - GAIT DISTURBANCE [None]
  - INNER EAR DISORDER [None]
  - MUSCLE SPASMS [None]
  - NEURALGIA [None]
  - POST PROCEDURAL COMPLICATION [None]
  - VISION BLURRED [None]
